FAERS Safety Report 21650278 (Version 1)
Quarter: 2022Q4

REPORT INFORMATION
  Report Type: Report from Study
  Country: IN (occurrence: None)
  Receive Date: 20221128
  Receipt Date: 20221128
  Transmission Date: 20230112
  Serious: Yes (Death, Other)
  Sender: FDA-Public Use
  Company Number: IN-Eisai Medical Research-EC-2022-128829

PATIENT
  Age: 64 Year
  Sex: Male

DRUGS (1)
  1. LENVIMA [Suspect]
     Active Substance: LENVATINIB
     Indication: Hepatocellular carcinoma
     Route: 048
     Dates: start: 202204, end: 2022

REACTIONS (3)
  - Diabetes mellitus [Unknown]
  - Multiple organ dysfunction syndrome [Fatal]
  - Liver injury [Unknown]

NARRATIVE: CASE EVENT DATE: 20220101
